FAERS Safety Report 22287836 (Version 2)
Quarter: 2023Q2

REPORT INFORMATION
  Report Type: Report from Study
  Country: US (occurrence: US)
  Receive Date: 20230505
  Receipt Date: 20230513
  Transmission Date: 20230721
  Serious: No
  Sender: FDA-Public Use
  Company Number: US-002147023-NVSC2023US100643

PATIENT
  Sex: Male

DRUGS (2)
  1. ENTRESTO [Suspect]
     Active Substance: SACUBITRIL\VALSARTAN
     Indication: Cardiac failure congestive
     Dosage: 2426 MG, QD
     Route: 048
     Dates: start: 2022
  2. ENTRESTO [Suspect]
     Active Substance: SACUBITRIL\VALSARTAN
     Dosage: 1 DOSAGE FORM, QD (0.5 TABLET IN THE MORNING, AND 0.5 TABLET IN THE AFTERNOON/EVENING)
     Route: 065

REACTIONS (4)
  - Respiration abnormal [Unknown]
  - Underdose [Unknown]
  - Cough [Unknown]
  - Wrong technique in product usage process [Unknown]
